FAERS Safety Report 4915527-3 (Version None)
Quarter: 2006Q1

REPORT INFORMATION
  Report Type: 
  Country: None (occurrence: None)
  Receive Date: 20060217
  Receipt Date: 20060209
  Transmission Date: 20060701
  Serious: Yes (Hospitalization)
  Sender: FDA-Public Use
  Company Number: US-MERCK-0602USA03654

PATIENT
  Age: 52 Year
  Sex: Male

DRUGS (2)
  1. VIOXX [Suspect]
     Indication: MONARTHRITIS
     Route: 048
     Dates: start: 20021001
  2. VIOXX [Suspect]
     Indication: MENISCUS LESION
     Route: 048
     Dates: start: 20021001

REACTIONS (6)
  - ACUTE MYOCARDIAL INFARCTION [None]
  - CORONARY ARTERY DISEASE [None]
  - DYSLIPIDAEMIA [None]
  - ECCHYMOSIS [None]
  - MENISCUS LESION [None]
  - VENTRICULAR TACHYCARDIA [None]
